FAERS Safety Report 22039865 (Version 1)
Quarter: 2023Q1

REPORT INFORMATION
  Report Type: Spontaneous
  Country: US (occurrence: US)
  Receive Date: 20230227
  Receipt Date: 20230227
  Transmission Date: 20230417
  Serious: No
  Sender: FDA-Public Use
  Company Number: US-TEVA-2023-US-2855015

PATIENT
  Age: 11 Year
  Sex: Male

DRUGS (3)
  1. FLUOXETINE [Suspect]
     Active Substance: FLUOXETINE HYDROCHLORIDE
     Indication: Depression
     Dosage: 10 MILLIGRAM
     Route: 065
     Dates: start: 20221008
  2. FLUOXETINE [Suspect]
     Active Substance: FLUOXETINE HYDROCHLORIDE
     Indication: Anxiety
     Dosage: 20 MILLIGRAM
     Route: 065
     Dates: start: 20221016
  3. FLUOXETINE [Suspect]
     Active Substance: FLUOXETINE HYDROCHLORIDE
     Indication: Disturbance in attention

REACTIONS (14)
  - Arthropod bite [Recovering/Resolving]
  - Pruritus [Recovering/Resolving]
  - Lip swelling [Recovering/Resolving]
  - Urticaria [Recovering/Resolving]
  - Arthralgia [Recovering/Resolving]
  - Peripheral swelling [Recovering/Resolving]
  - Rash [Recovering/Resolving]
  - Skin lesion [Recovering/Resolving]
  - Pyrexia [Recovering/Resolving]
  - Insomnia [Recovering/Resolving]
  - Formication [Recovering/Resolving]
  - Pain [Recovering/Resolving]
  - Head discomfort [Recovering/Resolving]
  - Pigmentation disorder [Recovering/Resolving]

NARRATIVE: CASE EVENT DATE: 20221001
